FAERS Safety Report 11223228 (Version 1)
Quarter: 2015Q2

REPORT INFORMATION
  Report Type: Spontaneous
  Country: US (occurrence: US)
  Receive Date: 20150626
  Receipt Date: 20150626
  Transmission Date: 20150821
  Serious: No
  Sender: FDA-Public Use
  Company Number: US-ASTRAZENECA-2015SE16629

PATIENT
  Age: 18602 Day
  Sex: Male
  Weight: 93 kg

DRUGS (9)
  1. LISINOPRIL. [Suspect]
     Active Substance: LISINOPRIL
     Route: 048
  2. LEUSTATIN [Concomitant]
     Active Substance: CLADRIBINE
  3. PIOGLITAZONE [Concomitant]
     Active Substance: PIOGLITAZONE
  4. METFORMIN [Concomitant]
     Active Substance: METFORMIN HYDROCHLORIDE
  5. PLAVIX/CLOPIDOGREL [Concomitant]
  6. BYDUREON [Suspect]
     Active Substance: EXENATIDE
     Indication: TYPE 2 DIABETES MELLITUS
     Route: 058
  7. LOVASTATIN. [Concomitant]
     Active Substance: LOVASTATIN
  8. AMLODIPINE [Concomitant]
     Active Substance: AMLODIPINE BESYLATE
  9. BESYLATE [Concomitant]

REACTIONS (3)
  - Contusion [Recovering/Resolving]
  - Injection site mass [Unknown]
  - Myalgia [Recovering/Resolving]

NARRATIVE: CASE EVENT DATE: 20150615
